FAERS Safety Report 8024335-9 (Version None)
Quarter: 2012Q1

REPORT INFORMATION
  Report Type: 
  Country: None (occurrence: None)
  Receive Date: 20120105
  Receipt Date: 20120104
  Transmission Date: 20120608
  Serious: Yes (Other)
  Sender: FDA-Public Use
  Company Number: US-TEVA-315893USA

PATIENT
  Sex: Female

DRUGS (2)
  1. ENJUVIA [Suspect]
  2. ESTROGENS CONJUGATED [Suspect]

REACTIONS (1)
  - MYOCARDIAL INFARCTION [None]
